FAERS Safety Report 20890087 (Version 1)
Quarter: 2022Q2

REPORT INFORMATION
  Report Type: Spontaneous
  Country: RU (occurrence: RU)
  Receive Date: 20220530
  Receipt Date: 20220530
  Transmission Date: 20220721
  Serious: Yes (Hospitalization)
  Sender: FDA-Public Use
  Company Number: RU-NOVARTISPH-NVSC2022RU121152

PATIENT
  Age: 17 Year
  Sex: Female
  Weight: 54 kg

DRUGS (2)
  1. ANAFRANIL [Suspect]
     Active Substance: CLOMIPRAMINE HYDROCHLORIDE
     Indication: Poisoning
     Dosage: 50 DOSAGE FORM
     Route: 048
     Dates: start: 20220513, end: 20220513
  2. CAPTOPRIL [Concomitant]
     Active Substance: CAPTOPRIL
     Indication: Poisoning
     Dosage: 30 DOSAGE FORM
     Route: 048
     Dates: start: 20220513, end: 20220513

REACTIONS (1)
  - Sopor [Recovered/Resolved]

NARRATIVE: CASE EVENT DATE: 20220513
